FAERS Safety Report 11122300 (Version 1)
Quarter: 2015Q2

REPORT INFORMATION
  Report Type: Spontaneous
  Country: BR (occurrence: BR)
  Receive Date: 20150519
  Receipt Date: 20150519
  Transmission Date: 20150821
  Serious: Yes (Other)
  Sender: FDA-Public Use
  Company Number: PHHY2015BR046866

PATIENT
  Age: 31 Year
  Sex: Female
  Weight: 103 kg

DRUGS (1)
  1. FORASEQ [Suspect]
     Active Substance: BUDESONIDE\FORMOTEROL FUMARATE
     Indication: ASTHMA
     Dosage: 1 DF, BID (WHEN SHE HAD EPISODES)
     Route: 055
     Dates: start: 20150415

REACTIONS (2)
  - Hypokinesia [Unknown]
  - Apnoea [Unknown]

NARRATIVE: CASE EVENT DATE: 20150415
